FAERS Safety Report 4979053-8 (Version None)
Quarter: 2006Q2

REPORT INFORMATION
  Report Type: 
  Country: None (occurrence: None)
  Receive Date: 20060420
  Receipt Date: 20060420
  Transmission Date: 20061013
  Serious: Yes (Other)
  Sender: FDA-Public Use
  Company Number: None

PATIENT
  Age: 35 Year
  Sex: Male

DRUGS (2)
  1. SULFASALAZINE [Suspect]
     Dosage: TABLET
  2. SULFADIAZINE [Suspect]
     Dosage: TABLET

REACTIONS (3)
  - COLITIS ULCERATIVE [None]
  - DRUG DISPENSING ERROR [None]
  - MEDICATION ERROR [None]
